FAERS Safety Report 21261865 (Version 1)
Quarter: 2022Q3

REPORT INFORMATION
  Report Type: Report from Study
  Country: IN (occurrence: IN)
  Receive Date: 20220827
  Receipt Date: 20220827
  Transmission Date: 20221027
  Serious: Yes (Other)
  Sender: FDA-Public Use
  Company Number: IN-NOVARTISPH-NVSC2022IN192964

PATIENT
  Age: 64 Year
  Sex: Female

DRUGS (1)
  1. ALPELISIB [Suspect]
     Active Substance: ALPELISIB
     Indication: Breast cancer metastatic
     Dosage: 150 MG, QD
     Route: 065
     Dates: start: 20220718

REACTIONS (2)
  - Neutropenia [Unknown]
  - Product use issue [Unknown]

NARRATIVE: CASE EVENT DATE: 20220718
